FAERS Safety Report 6663642-9 (Version None)
Quarter: 2010Q2

REPORT INFORMATION
  Report Type: 
  Country: None (occurrence: None)
  Receive Date: 20100401
  Receipt Date: 20100324
  Transmission Date: 20101027
  Serious: Yes (Hospitalization)
  Sender: FDA-Public Use
  Company Number: ES-ROCHE-692677

PATIENT
  Sex: Male
  Weight: 94 kg

DRUGS (5)
  1. TOCILIZUMAB [Suspect]
     Indication: RHEUMATOID ARTHRITIS
     Dosage: FORM: VIALS.  LAST DOSE PRIOR TO SAE: 12 JAN 2010
     Route: 042
     Dates: start: 20090929, end: 20100216
  2. LEFLUNOMIDE [Concomitant]
     Dates: start: 20090401, end: 20100216
  3. PREDNISONE [Concomitant]
     Dates: start: 20081119, end: 20100216
  4. OMEPRAZOLE [Concomitant]
     Dates: start: 20080929
  5. INDOMETHACIN [Concomitant]
     Dates: start: 20081119

REACTIONS (1)
  - LARYNGEAL CANCER [None]
